FAERS Safety Report 16077062 (Version 1)
Quarter: 2019Q1

REPORT INFORMATION
  Report Type: Spontaneous
  Country: US (occurrence: US)
  Receive Date: 20190315
  Receipt Date: 20190315
  Transmission Date: 20190418
  Serious: No
  Sender: FDA-Public Use
  Company Number: US-IPSEN BIOPHARMACEUTICALS, INC.-2019-03871

PATIENT
  Age: 45 Year
  Sex: Female

DRUGS (2)
  1. DYSPORT [Suspect]
     Active Substance: ABOBOTULINUMTOXINA
     Indication: SKIN COSMETIC PROCEDURE
  2. DYSPORT [Suspect]
     Active Substance: ABOBOTULINUMTOXINA
     Indication: SKIN WRINKLING
     Dosage: TOTAL UNITS INJECTED ARE 20 UNITS.?VOLUME USED FOR RECONSTITUTION-1.2 ML.
     Route: 030
     Dates: start: 20190206, end: 20190206

REACTIONS (4)
  - Off label use [Unknown]
  - Vision blurred [Not Recovered/Not Resolved]
  - Product preparation error [Unknown]
  - Incorrect product administration duration [Unknown]

NARRATIVE: CASE EVENT DATE: 20190206
